FAERS Safety Report 5918784-X (Version None)
Quarter: 2008Q4

REPORT INFORMATION
  Report Type: 
  Country: None (occurrence: None)
  Receive Date: 20081015
  Receipt Date: 20081007
  Transmission Date: 20090506
  Serious: Yes (Hospitalization, Other)
  Sender: FDA-Public Use
  Company Number: US-BAYER-200832527NA

PATIENT
  Age: 81 Year
  Sex: Female

DRUGS (25)
  1. NEXAVAR [Suspect]
     Indication: HEPATIC NEOPLASM MALIGNANT
     Dosage: TOTAL DAILY DOSE: 400 MG  UNIT DOSE: 200 MG
     Route: 048
     Dates: start: 20080628, end: 20080801
  2. BENICAR [Concomitant]
     Dosage: TOTAL DAILY DOSE: 40 MG
  3. MULTI-VITAMIN [Concomitant]
  4. PROTONIX [Concomitant]
  5. TRUSOPT [Concomitant]
  6. COLACE [Concomitant]
     Dosage: TOTAL DAILY DOSE: 100 MG
  7. MAXOXIDE [Concomitant]
  8. ULTRAM [Concomitant]
  9. MEGACE [Concomitant]
  10. FERROUS SULFATE [Concomitant]
     Dosage: TOTAL DAILY DOSE: 300 MG
  11. ATENOLOL [Concomitant]
     Dosage: TOTAL DAILY DOSE: 100 MG
  12. ALPHAGAN DROPS [Concomitant]
  13. EPOGEN [Concomitant]
     Indication: ANAEMIA
  14. ARANESP [Concomitant]
     Indication: ANAEMIA
     Dates: start: 20080711, end: 20080711
  15. ARANESP [Concomitant]
     Dates: start: 20080725, end: 20080725
  16. MAGNESIUM OXIDE [Concomitant]
     Dosage: TOTAL DAILY DOSE: 800 MG
  17. CATAPRES-TTS PATCH #2 [Concomitant]
  18. OCEAN SPRAY NASAL SPRAY [Concomitant]
  19. PREDNISONE [Concomitant]
     Dosage: TOTAL DAILY DOSE: 50 MG
  20. PRILOSEC [Concomitant]
     Dosage: TOTAL DAILY DOSE: 20 MG
  21. TRAMADOL HCL [Concomitant]
     Indication: PAIN
  22. DURAGESIC-100 [Concomitant]
  23. ROXANOL [Concomitant]
     Indication: PAIN
     Route: 060
  24. ATIVAN [Concomitant]
  25. SCOPOLAMINE [Concomitant]

REACTIONS (7)
  - ASTHENIA [None]
  - HAEMOPTYSIS [None]
  - HYPOMAGNESAEMIA [None]
  - LETHARGY [None]
  - NASAL CONGESTION [None]
  - PYREXIA [None]
  - THROMBOCYTOPENIA [None]
